FAERS Safety Report 15965214 (Version 1)
Quarter: 2019Q1

REPORT INFORMATION
  Report Type: Spontaneous
  Country: US (occurrence: US)
  Receive Date: 20190124
  Receipt Date: 20190124
  Transmission Date: 20190418
  Serious: Yes (Other)
  Sender: FDA-Public Use
  Company Number: None

PATIENT
  Age: 68 Year
  Sex: Male
  Weight: 78.02 kg

DRUGS (1)
  1. VALSARTAN HCTZ 320-12.5 MG TAB [Suspect]
     Active Substance: HYDROCHLOROTHIAZIDE\VALSARTAN
     Indication: HYPERTENSION
     Route: 048
     Dates: start: 20160620

REACTIONS (8)
  - Rash [None]
  - Cough [None]
  - Lung disorder [None]
  - Rhinorrhoea [None]
  - Influenza [None]
  - Visual impairment [None]
  - Scratch [None]
  - Dyspnoea [None]
